FAERS Safety Report 4815952-5 (Version None)
Quarter: 2005Q4

REPORT INFORMATION
  Report Type: 
  Country: None (occurrence: None)
  Receive Date: 20051027
  Receipt Date: 20051013
  Transmission Date: 20060501
  Serious: Yes (Hospitalization)
  Sender: FDA-Public Use
  Company Number: S05-FRA-03928-01

PATIENT
  Age: 81 Year
  Sex: Female

DRUGS (4)
  1. MEMANTINE HCL [Suspect]
     Dosage: 20 MG QD PO
     Route: 048
     Dates: end: 20050812
  2. EXELON [Suspect]
     Dates: end: 20050812
  3. DOMPERIDONE [Suspect]
  4. NEURONTIN [Concomitant]

REACTIONS (2)
  - CEREBRAL ATROPHY [None]
  - CHOREA [None]
